FAERS Safety Report 8066112-9 (Version None)
Quarter: 2012Q1

REPORT INFORMATION
  Report Type: 
  Country: None (occurrence: None)
  Receive Date: 20120124
  Receipt Date: 20120117
  Transmission Date: 20120608
  Serious: Yes (Hospitalization, Other)
  Sender: FDA-Public Use
  Company Number: FR-ROCHE-781818

PATIENT
  Sex: Female
  Weight: 63 kg

DRUGS (8)
  1. FERROUS SULFATE TAB [Concomitant]
     Route: 048
     Dates: start: 20110601, end: 20110712
  2. PEGINTERFERON ALFA-2A [Suspect]
     Dosage: LAST DOSE PRIOR TO SAE: 08 JULY 2011
     Route: 058
  3. METHERGINE [Concomitant]
  4. NILOTINIB [Suspect]
     Route: 048
  5. IBUPROFEN (ADVIL) [Concomitant]
     Dosage: TDD REPORTED AS PRN
  6. PEGINTERFERON ALFA-2A [Suspect]
     Indication: CHRONIC MYELOID LEUKAEMIA
     Route: 058
     Dates: start: 20110414, end: 20110607
  7. ALLOPURINOL [Concomitant]
     Dosage: TOTAL DAILY DOSE: 1/DAY
  8. NILOTINIB [Suspect]
     Indication: CHRONIC MYELOID LEUKAEMIA
     Route: 048
     Dates: start: 20110512, end: 20110607

REACTIONS (5)
  - THROMBOCYTOPENIA [None]
  - ANAEMIA [None]
  - SHOCK HAEMORRHAGIC [None]
  - NEUTROPENIA [None]
  - METRORRHAGIA [None]
